FAERS Safety Report 5740571-6 (Version None)
Quarter: 2008Q2

REPORT INFORMATION
  Report Type: 
  Country: None (occurrence: None)
  Receive Date: 20080516
  Receipt Date: 20080515
  Transmission Date: 20081010
  Serious: Yes (Death)
  Sender: FDA-Public Use
  Company Number: US-ASTRAZENECA-2008UW10083

PATIENT
  Age: 87 Year
  Sex: Female
  Weight: 57.6 kg

DRUGS (3)
  1. CRESTOR [Suspect]
     Indication: HYPERCHOLESTEROLAEMIA
     Route: 048
  2. INSULIN [Concomitant]
  3. THREE INHALERS [Concomitant]

REACTIONS (1)
  - MYOCARDIAL INFARCTION [None]
